FAERS Safety Report 5900017-1 (Version None)
Quarter: 2008Q3

REPORT INFORMATION
  Report Type: 
  Country: None (occurrence: None)
  Receive Date: 20080915
  Receipt Date: 20080915
  Transmission Date: 20090109
  Serious: Yes (Disabling)
  Sender: FDA-Public Use
  Company Number: None

PATIENT
  Sex: Female
  Weight: 61.6892 kg

DRUGS (1)
  1. PRO HEALTH MOUTH RINSE NIGHT TIME CREST [Suspect]
     Indication: DENTAL DISORDER PROPHYLAXIS
     Dosage: 10 ML QHS PO
     Route: 048
     Dates: start: 20080501, end: 20080801

REACTIONS (1)
  - TOOTH DISCOLOURATION [None]
